FAERS Safety Report 13853033 (Version 1)
Quarter: 2017Q3

REPORT INFORMATION
  Report Type: Spontaneous
  Country: US (occurrence: US)
  Receive Date: 20170809
  Receipt Date: 20170809
  Transmission Date: 20171127
  Serious: No
  Sender: FDA-Public Use
  Company Number: US-ROCHE-546974

PATIENT
  Age: 79 Year
  Sex: Female
  Weight: 52.2 kg

DRUGS (6)
  1. NORVASC [Concomitant]
     Active Substance: AMLODIPINE BESYLATE
     Route: 065
  2. TROLAMINE SALICYLATE. [Concomitant]
     Active Substance: TROLAMINE SALICYLATE
     Indication: SLEEP DISORDER THERAPY
     Dosage: DOSAGE REGIMEN: F/WEEKS
     Route: 065
  3. METOPROLOL. [Concomitant]
     Active Substance: METOPROLOL
     Route: 065
  4. OSTEO BI-FLEX PRODUCT NOS [Concomitant]
     Indication: ARTHROPATHY
     Route: 065
  5. BONIVA [Suspect]
     Active Substance: IBANDRONATE SODIUM
     Indication: OSTEOPOROSIS
     Dosage: FORMULATION: PILL, PATIENT ON BONIVA FOR ABOUT 5 YRS.
     Route: 065
  6. OCUVITE [Concomitant]
     Active Substance: VITAMINS
     Route: 065

REACTIONS (15)
  - Abdominal pain upper [Recovered/Resolved]
  - Weight decreased [Not Recovered/Not Resolved]
  - Pain in extremity [Unknown]
  - Decreased appetite [Unknown]
  - Gait disturbance [Not Recovered/Not Resolved]
  - Discomfort [Recovering/Resolving]
  - Diarrhoea [Unknown]
  - Dysgeusia [Not Recovered/Not Resolved]
  - Nausea [Recovering/Resolving]
  - Drug administration error [Unknown]
  - Vomiting [Not Recovered/Not Resolved]
  - Flatulence [Recovered/Resolved]
  - Dizziness [Not Recovered/Not Resolved]
  - Back pain [Not Recovered/Not Resolved]
  - Arthritis [Not Recovered/Not Resolved]

NARRATIVE: CASE EVENT DATE: 200802
